FAERS Safety Report 6757141-3 (Version None)
Quarter: 2010Q2

REPORT INFORMATION
  Report Type: 
  Country: None (occurrence: None)
  Receive Date: 20100605
  Receipt Date: 20100601
  Transmission Date: 20101027
  Serious: Yes (Hospitalization)
  Sender: FDA-Public Use
  Company Number: TN-ROCHE-707026

PATIENT
  Sex: Male
  Weight: 76 kg

DRUGS (3)
  1. PEGASYS [Suspect]
     Route: 058
     Dates: start: 20100518, end: 20100524
  2. COPEGUS [Suspect]
     Route: 048
     Dates: start: 20100518, end: 20100524
  3. BIPRETERAX [Concomitant]
     Dosage: FREQUENCY: DAILY.
     Route: 048
     Dates: start: 20100101

REACTIONS (1)
  - HEPATIC ENCEPHALOPATHY [None]
